FAERS Safety Report 17691012 (Version 1)
Quarter: 2020Q2

REPORT INFORMATION
  Report Type: Spontaneous
  Country: CN (occurrence: CN)
  Receive Date: 20200422
  Receipt Date: 20200422
  Transmission Date: 20200714
  Serious: Yes (Other)
  Sender: FDA-Public Use
  Company Number: CN-BAUSCH-BL-2020-010699

PATIENT
  Age: 51 Year
  Sex: Female

DRUGS (2)
  1. DEXAMETHASONE. [Suspect]
     Active Substance: DEXAMETHASONE
     Dosage: 0.75 TO 1.5 MG/DAY FOR ONE YEAR, AFTER THE ANTIFUNGAL THERAPY
     Route: 065
  2. DEXAMETHASONE. [Suspect]
     Active Substance: DEXAMETHASONE
     Indication: PRODUCT USED FOR UNKNOWN INDICATION
     Dosage: 0.75 TO 1.5 MG/DAY FOR ONE YEAR
     Route: 065

REACTIONS (4)
  - Mycobacterial infection [Recovered/Resolved]
  - Skin infection [Recovered/Resolved]
  - Intentional product misuse [Unknown]
  - Meningitis cryptococcal [Unknown]
